FAERS Safety Report 11239217 (Version 1)
Quarter: 2015Q3

REPORT INFORMATION
  Report Type: Spontaneous
  Country: US (occurrence: None)
  Receive Date: 20150701
  Receipt Date: 20150701
  Transmission Date: 20151125
  Serious: Yes (Disabling)
  Sender: FDA-Public Use
  Company Number: None

PATIENT
  Age: 83 Year
  Sex: Male
  Weight: 77.11 kg

DRUGS (1)
  1. COMBIGAN [Suspect]
     Active Substance: BRIMONIDINE TARTRATE\TIMOLOL MALEATE
     Indication: GLAUCOMA
     Dosage: 0.2%/0.5%?1 DROP EACH EYE/2X DAY?TWICE DAILY?ON THE EYE
     Route: 047
     Dates: start: 20140110, end: 20150608

REACTIONS (5)
  - Hypersensitivity [None]
  - Ocular hyperaemia [None]
  - Eye pruritus [None]
  - Type IV hypersensitivity reaction [None]
  - Eye pain [None]

NARRATIVE: CASE EVENT DATE: 20150506
